FAERS Safety Report 24592210 (Version 21)
Quarter: 2025Q4

REPORT INFORMATION
  Report Type: Spontaneous
  Country: BR (occurrence: BR)
  Receive Date: 20241108
  Receipt Date: 20251111
  Transmission Date: 20260118
  Serious: Yes (Hospitalization, Other)
  Sender: SANDOZ
  Company Number: BR-002147023-NVSC2022BR226962

PATIENT
  Age: 68 Year
  Sex: Female
  Weight: 93 kg

DRUGS (36)
  1. ANASTROZOLE [Suspect]
     Active Substance: ANASTROZOLE
     Indication: Blood pressure abnormal
     Dosage: 1 DOSAGE FORM, QD (QUANTITY 30 TABLET) (DAYS OF TREATMENT: C12/D1 ? 18 AUG 2023 (TAKE ONE TABLET PER
     Route: 048
  2. ANASTROZOLE [Suspect]
     Active Substance: ANASTROZOLE
     Indication: Breast cancer
     Dosage: 1 TABLET - 1 X DAY, WHEN STARTED TAKING KISQALI
     Route: 048
  3. ANASTROZOLE [Suspect]
     Active Substance: ANASTROZOLE
     Indication: Alopecia
     Dosage: UNK (20)
     Route: 065
  4. ANASTROZOLE [Suspect]
     Active Substance: ANASTROZOLE
     Indication: Prophylaxis
     Dosage: 1 DF, 1 DOSAGE FORM (TABLET IN THE MORNING, AT 06:00AM)
     Route: 065
  5. CARVEDILOL [Suspect]
     Active Substance: CARVEDILOL
     Indication: Cardiac disorder
     Dosage: 1 TABLET - 1 X DAY
     Route: 048
  6. METAMIZOLE SODIUM [Suspect]
     Active Substance: METAMIZOLE SODIUM
     Indication: Influenza
     Dosage: UNK
     Route: 065
  7. FUROSEMIDE [Suspect]
     Active Substance: FUROSEMIDE
     Indication: Diuretic therapy
     Dosage: 40 MG, 1 TABLET - 1 X DAY, MANY YEARS AGO
     Route: 048
  8. HYDROCHLOROTHIAZIDE [Suspect]
     Active Substance: HYDROCHLOROTHIAZIDE
     Indication: Blood pressure abnormal
     Dosage: UNK
     Route: 065
  9. KISQALI [Suspect]
     Active Substance: RIBOCICLIB SUCCINATE
     Dosage: UNK
     Route: 065
  10. KISQALI [Suspect]
     Active Substance: RIBOCICLIB SUCCINATE
     Dosage: UNK
     Route: 065
  11. KISQALI [Suspect]
     Active Substance: RIBOCICLIB SUCCINATE
     Dosage: 3 DOSAGE FORM, QD (3 DAILY  TABLETS,  WITH 21 RUNNING (AS  REPORTED))
     Route: 048
  12. KISQALI [Suspect]
     Active Substance: RIBOCICLIB SUCCINATE
     Dosage: UNK (START DATE: 27 SEP)
     Route: 065
  13. KISQALI [Suspect]
     Active Substance: RIBOCICLIB SUCCINATE
     Dosage: UNK
     Route: 048
  14. KISQALI [Suspect]
     Active Substance: RIBOCICLIB SUCCINATE
     Dosage: 200 MG (IN 2023)
     Route: 065
  15. KISQALI [Suspect]
     Active Substance: RIBOCICLIB SUCCINATE
     Indication: Breast cancer
     Dosage: 3 DF, (PER 21 DAYS) (EXPIRY DATE MAY 2024); START DATE: 29-SEP-2022
     Route: 065
  16. KISQALI [Suspect]
     Active Substance: RIBOCICLIB SUCCINATE
     Dosage: 3 DOSAGE FORM (PER 21 DAYS) (EXPIRY DATE MAY 2024)
     Route: 065
  17. KISQALI [Suspect]
     Active Substance: RIBOCICLIB SUCCINATE
     Dosage: 200 MG, OTHER (TAKE 3 TABLETS, BY ORAL ROUTE, FOR 21 DAYS AND PAUSE 7 DAYS)
     Route: 048
  18. KISQALI [Suspect]
     Active Substance: RIBOCICLIB SUCCINATE
     Dosage: 3 DOSAGE FORM, QD
     Route: 048
  19. KISQALI [Suspect]
     Active Substance: RIBOCICLIB SUCCINATE
     Dosage: 3 DOSAGE FORM, QD (3 TABLETS), START DATE: 22-NOV-2024
     Route: 048
  20. KISQALI [Suspect]
     Active Substance: RIBOCICLIB SUCCINATE
     Indication: Bone cancer
     Dosage: 3 DOSAGE FORM, QD (SEP-2021 OR 2022)
     Route: 048
  21. KISQALI [Suspect]
     Active Substance: RIBOCICLIB SUCCINATE
     Dosage: 3 DOSAGE FORM, QD (TAKE 03 TABLETS 200 MG PER DAY (DAILY DOSE 600 MG) (DAYS OF TREATMENT: C12/D1- 18
     Route: 048
  22. KISQALI [Suspect]
     Active Substance: RIBOCICLIB SUCCINATE
     Dosage: 3 DOSAGE FORM (NEW CYCLE ON 02 AUG, 07: 30AM)
     Route: 065
  23. KISQALI [Suspect]
     Active Substance: RIBOCICLIB SUCCINATE
     Dosage: 3 TABLETS A DAY - 7 DAYS BREAK
     Route: 048
  24. KISQALI [Suspect]
     Active Substance: RIBOCICLIB SUCCINATE
     Dosage: UNK
     Route: 065
  25. KISQALI [Suspect]
     Active Substance: RIBOCICLIB SUCCINATE
     Dosage: UNK (STARTED ON 30 AUG)
     Route: 065
  26. KISQALI [Suspect]
     Active Substance: RIBOCICLIB SUCCINATE
     Dosage: UNK, START DATE:06-JUN-2024
     Route: 065
  27. LOSARTAN [Suspect]
     Active Substance: LOSARTAN
     Dosage: 50 MG, QD (MANY YEARS AGO)
     Route: 048
  28. LOSARTAN [Suspect]
     Active Substance: LOSARTAN
     Indication: Blood pressure abnormal
     Dosage: UNK
     Route: 065
  29. RIBOCICLIB [Suspect]
     Active Substance: RIBOCICLIB
     Indication: Breast cancer metastatic
     Dosage: 3 TABLETS
     Route: 065
  30. SPIRONOLACTONE [Suspect]
     Active Substance: SPIRONOLACTONE
     Indication: Cardiac disorder
     Dosage: 25 MG, 1 TABLET - 1 X DAY, MANY YEARS AGO
     Route: 048
  31. ANASTROZOLE [Concomitant]
     Active Substance: ANASTROZOLE
     Indication: Product used for unknown indication
     Dosage: UNK
     Route: 065
  32. CARVEDILOL [Concomitant]
     Active Substance: CARVEDILOL
     Indication: Cardiac disorder
     Dosage: 1 DOSAGE FORM, QD (1 TABLET - 1 X DAY)
     Route: 048
  33. METAMIZOLE SODIUM [Concomitant]
     Active Substance: METAMIZOLE SODIUM
     Indication: Product used for unknown indication
     Dosage: UNK
     Route: 065
  34. FUROSEMIDE [Concomitant]
     Active Substance: FUROSEMIDE
     Indication: Diuretic therapy
     Dosage: 40 MG, QD (1 TABLET - 1 X DAY)
     Route: 065
  35. CAFFEINE\ISOMETHEPTENE\METHIMAZOLE [Concomitant]
     Active Substance: CAFFEINE\ISOMETHEPTENE\METHIMAZOLE
     Indication: Product used for unknown indication
     Dosage: UNK
     Route: 065
  36. SPIRONOLACTONE [Concomitant]
     Active Substance: SPIRONOLACTONE
     Indication: Cardiac disorder
     Dosage: 25 MG, QD (1 TABLET - 1 X DAY MANY YEARS AGO)
     Route: 048

REACTIONS (83)
  - Pulmonary oedema [Unknown]
  - COVID-19 [Unknown]
  - Pleural effusion [Unknown]
  - Cardiac failure [Recovered/Resolved]
  - Cardiac failure [Not Recovered/Not Resolved]
  - Cataract [Not Recovered/Not Resolved]
  - Arrhythmia [Recovering/Resolving]
  - Visual impairment [Not Recovered/Not Resolved]
  - Alopecia [Not Recovered/Not Resolved]
  - Headache [Recovered/Resolved]
  - Abdominal pain [Unknown]
  - Illness [Unknown]
  - Hypersensitivity [Recovered/Resolved]
  - Sluggishness [Recovered/Resolved]
  - Pollakiuria [Unknown]
  - Pain [Recovered/Resolved]
  - Abdominal discomfort [Recovered/Resolved]
  - Gastrooesophageal reflux disease [Unknown]
  - Abdominal distension [Recovering/Resolving]
  - Skin exfoliation [Recovered/Resolved]
  - Urinary tract infection [Recovered/Resolved]
  - Dry skin [Recovered/Resolved]
  - Hypertension [Unknown]
  - Migraine [Not Recovered/Not Resolved]
  - Cardiac disorder [Unknown]
  - Osteoarthritis [Unknown]
  - Speech disorder [Unknown]
  - Cough [Unknown]
  - Asthenia [Unknown]
  - Vitiligo [Not Recovered/Not Resolved]
  - Skin disorder [Unknown]
  - Vomiting [Unknown]
  - Constipation [Recovered/Resolved]
  - Influenza [Recovered/Resolved]
  - Influenza [Unknown]
  - Hypersensitivity [Unknown]
  - Hypotension [Recovered/Resolved]
  - Blood pressure increased [Recovered/Resolved]
  - Photosensitivity reaction [Not Recovered/Not Resolved]
  - Cardiomegaly [Unknown]
  - Skin discolouration [Not Recovered/Not Resolved]
  - Abdominal discomfort [Recovered/Resolved]
  - Blood pressure abnormal [Recovered/Resolved]
  - Hypotension [Recovered/Resolved]
  - Gait disturbance [Recovering/Resolving]
  - Pigmentation disorder [Not Recovered/Not Resolved]
  - Dengue fever [Recovering/Resolving]
  - Oesophageal disorder [Unknown]
  - Eating disorder [Unknown]
  - Visual impairment [Unknown]
  - Fall [Recovering/Resolving]
  - Confusional state [Unknown]
  - Feeding disorder [Unknown]
  - Anaemia [Unknown]
  - Wound [Recovered/Resolved]
  - Musculoskeletal chest pain [Not Recovered/Not Resolved]
  - Alopecia [Not Recovered/Not Resolved]
  - Skin discolouration [Not Recovered/Not Resolved]
  - Dermatitis allergic [Recovered/Resolved]
  - Skin discolouration [Not Recovered/Not Resolved]
  - Musculoskeletal chest pain [Recovered/Resolved]
  - Dyspepsia [Recovering/Resolving]
  - Dyspepsia [Recovering/Resolving]
  - Rash macular [Unknown]
  - Rash macular [Not Recovered/Not Resolved]
  - Pain [Not Recovered/Not Resolved]
  - Platelet count decreased [Unknown]
  - Pain [Not Recovered/Not Resolved]
  - Sensitive skin [Unknown]
  - Pain in extremity [Unknown]
  - Wrist fracture [Recovering/Resolving]
  - Mouth ulceration [Recovered/Resolved]
  - Stomatitis [Recovering/Resolving]
  - Cholelithiasis [Not Recovered/Not Resolved]
  - Mouth ulceration [Recovering/Resolving]
  - Wound [Recovering/Resolving]
  - Lip pain [Unknown]
  - Lip dry [Not Recovered/Not Resolved]
  - Lip exfoliation [Not Recovered/Not Resolved]
  - Concomitant disease aggravated [Not Recovered/Not Resolved]
  - Therapeutic response unexpected [Unknown]
  - Inappropriate schedule of product administration [Not Recovered/Not Resolved]
  - Off label use [Unknown]

NARRATIVE: CASE EVENT DATE: 20220929
